FAERS Safety Report 18632393 (Version 13)
Quarter: 2023Q2

REPORT INFORMATION
  Report Type: Report from Study
  Country: US (occurrence: US)
  Receive Date: 20201218
  Receipt Date: 20230519
  Transmission Date: 20230721
  Serious: Yes (Death, Hospitalization, Other)
  Sender: FDA-Public Use
  Company Number: US-ACADIA PHARMACEUTICALS INC.-ACA-2020-PIM-003949

PATIENT
  Age: 73 Year
  Sex: Male
  Weight: 66 kg

DRUGS (8)
  1. NUPLAZID [Suspect]
     Active Substance: PIMAVANSERIN TARTRATE
     Indication: Parkinson^s disease
     Dosage: 34 MILLIGRAM, QD
     Route: 048
     Dates: start: 20200729
  2. NUPLAZID [Suspect]
     Active Substance: PIMAVANSERIN TARTRATE
     Dosage: 34 MILLIGRAM, QD
     Route: 048
     Dates: end: 20230417
  3. EXELON [Concomitant]
     Active Substance: RIVASTIGMINE TARTRATE
     Dosage: 13.3 MG/24HR PT24, APPLY 1 PATCH EXTERNALLY TO SKIN DAILY
  4. DUOPA [Concomitant]
     Active Substance: CARBIDOPA\LEVODOPA
  5. METHIMAZOLE [Concomitant]
     Active Substance: METHIMAZOLE
  6. SINEMET [Concomitant]
     Active Substance: CARBIDOPA\LEVODOPA
     Dosage: 25-100 MG, TAKE 1.5 TABLETS FOUR TIMES DAILY
     Route: 048
  7. SEROQUEL [Concomitant]
     Active Substance: QUETIAPINE FUMARATE
     Dosage: 25 MILLIGRAM, AT BEDTIME
     Route: 048
  8. RIVASTIGMINE [Concomitant]
     Active Substance: RIVASTIGMINE
     Dosage: 13.3/24 HR, APPLY 1 PATCH EXTERNALLY TO THE SKIN DAY

REACTIONS (13)
  - Parkinson^s disease [Recovered/Resolved]
  - Atrial fibrillation [Unknown]
  - Terminal state [Unknown]
  - Hip fracture [Unknown]
  - Hip fracture [Recovered/Resolved]
  - Device occlusion [Unknown]
  - COVID-19 [Unknown]
  - Device dislocation [Unknown]
  - Decubitus ulcer [Recovering/Resolving]
  - Fall [Unknown]
  - Mobility decreased [Unknown]
  - Musculoskeletal stiffness [Unknown]
  - Dysphagia [Unknown]

NARRATIVE: CASE EVENT DATE: 20201106
